FAERS Safety Report 25360701 (Version 4)
Quarter: 2025Q3

REPORT INFORMATION
  Report Type: Report from Study
  Country: MX (occurrence: MX)
  Receive Date: 20250527
  Receipt Date: 20250809
  Transmission Date: 20251021
  Serious: Yes (Hospitalization, Other)
  Sender: ALEXION PHARMACEUTICALS
  Company Number: MX-AstraZeneca-CH-00876289A

PATIENT
  Age: 51 Year
  Sex: Female
  Weight: 55 kg

DRUGS (6)
  1. OLAPARIB [Suspect]
     Active Substance: OLAPARIB
     Indication: Ovarian cancer
     Dosage: 150 MILLIGRAM, BID (ONE TABLET IN THE MORNING, AND ONE TABLET BY NIGHT)
     Dates: start: 20250514
  2. OLAPARIB [Suspect]
     Active Substance: OLAPARIB
     Dosage: 100 MILLIGRAM, BID (FOUR TABLETS IN THE MORNING, AND FOUR TABLETS BY NIGHT)
     Dates: start: 2022, end: 2022
  3. OLAPARIB [Suspect]
     Active Substance: OLAPARIB
     Dosage: 450 MILLIGRAM, QD
     Dates: start: 20250409, end: 20250430
  4. OLAPARIB [Suspect]
     Active Substance: OLAPARIB
     Dosage: 300 MILLIGRAM, Q12H
     Dates: start: 20250409, end: 20250430
  5. BEVACIZUMAB [Concomitant]
     Active Substance: BEVACIZUMAB
     Indication: Ovarian cancer
     Dosage: 400 MILLIGRAM, Q3W
     Dates: start: 2022
  6. ERYTHROPOIETIN [Concomitant]
     Active Substance: ERYTHROPOIETIN
     Indication: Haemoglobin decreased
     Dosage: 50000 INTERNATIONAL UNIT, Q3W
     Dates: start: 2022

REACTIONS (11)
  - Haemoglobin decreased [Not Recovered/Not Resolved]
  - Red blood cell count decreased [Recovering/Resolving]
  - Neutrophil count decreased [Recovered/Resolved]
  - Platelet count decreased [Recovering/Resolving]
  - White blood cell count decreased [Not Recovered/Not Resolved]
  - Pseudomonal sepsis [Recovered/Resolved with Sequelae]
  - Osteomyelitis [Recovered/Resolved with Sequelae]
  - Pancytopenia [Unknown]
  - Fatigue [Recovered/Resolved]
  - Vomiting [Recovered/Resolved]
  - Somnolence [Recovered/Resolved]

NARRATIVE: CASE EVENT DATE: 20220101
